FAERS Safety Report 4869388-1 (Version None)
Quarter: 2005Q4

REPORT INFORMATION
  Report Type: 
  Country: None (occurrence: None)
  Receive Date: 20051230
  Receipt Date: 20051004
  Transmission Date: 20060501
  Serious: Yes (Hospitalization)
  Sender: FDA-Public Use
  Company Number: US-MERCK-0510USA03908

PATIENT
  Age: 72 Year
  Sex: Male
  Weight: 79 kg

DRUGS (16)
  1. VIOXX [Suspect]
     Indication: ARTHRITIS
     Route: 048
     Dates: start: 20021016, end: 20030830
  2. VIOXX [Suspect]
     Route: 048
     Dates: start: 19990501, end: 20020612
  3. VIOXX [Suspect]
     Indication: PAIN
     Route: 048
     Dates: start: 20021016, end: 20030830
  4. VIOXX [Suspect]
     Route: 048
     Dates: start: 19990501, end: 20020612
  5. HYDROCODONE BITARTRATE [Concomitant]
     Route: 065
     Dates: start: 20020101
  6. DIAZEPAM [Concomitant]
     Route: 065
  7. NITROQUICK [Concomitant]
     Indication: CARDIAC DISORDER
     Route: 065
     Dates: start: 19950101
  8. MSM COMPLETE [Concomitant]
     Indication: PAIN
     Route: 065
     Dates: start: 20020601, end: 20020801
  9. CARISOPRODOL [Concomitant]
     Route: 065
     Dates: start: 20020601
  10. NEXIUM [Concomitant]
     Route: 065
  11. PERCOCET [Concomitant]
     Route: 065
  12. BIAXIN [Concomitant]
     Route: 065
  13. RHINOCORT [Concomitant]
     Route: 065
  14. PREDNISONE [Concomitant]
     Route: 065
  15. COMBIVENT [Concomitant]
     Route: 065
  16. SULFAMETHOXAZOLE AND TRIMETHOPRIM [Concomitant]
     Route: 065

REACTIONS (2)
  - ARTERIOSCLEROSIS [None]
  - MYOCARDIAL INFARCTION [None]
